FAERS Safety Report 10179270 (Version 1)
Quarter: 2014Q2

REPORT INFORMATION
  Report Type: Spontaneous
  Country: US (occurrence: US)
  Receive Date: 20140519
  Receipt Date: 20140519
  Transmission Date: 20141212
  Serious: Yes (Other)
  Sender: FDA-Public Use
  Company Number: 2014SP001419

PATIENT
  Age: 65 Year
  Sex: Female

DRUGS (11)
  1. BROVANA [Suspect]
     Indication: CHRONIC OBSTRUCTIVE PULMONARY DISEASE
     Route: 055
  2. ALL OTHER THERAPEUTIC PRODUCTS [Suspect]
     Indication: CHRONIC OBSTRUCTIVE PULMONARY DISEASE
     Route: 055
     Dates: start: 201403
  3. ALL OTHER THERAPEUTIC PRODUCTS [Suspect]
     Indication: DYSPNOEA
     Route: 055
     Dates: start: 201403
  4. DUONEB [Concomitant]
  5. ALPRAZOLAM [Concomitant]
  6. FUROSEMIDE [Concomitant]
  7. PARACETAMOL [Concomitant]
  8. MULTIVITAMINS [Concomitant]
  9. VITAMIN D /00107901/ [Concomitant]
  10. ASCORBIC ACID [Concomitant]
  11. ANTACIDS [Concomitant]

REACTIONS (2)
  - Autoimmune disorder [Unknown]
  - Bone pain [Unknown]
